FAERS Safety Report 9423247 (Version 1)
Quarter: 2013Q3

REPORT INFORMATION
  Report Type: Spontaneous
  Country: US (occurrence: US)
  Receive Date: 20130726
  Receipt Date: 20130726
  Transmission Date: 20140515
  Serious: No
  Sender: FDA-Public Use
  Company Number: US-PFIZER INC-2013218341

PATIENT
  Age: 54 Year
  Sex: Female
  Weight: 63.49 kg

DRUGS (5)
  1. NEURONTIN [Suspect]
     Indication: FIBROMYALGIA
     Dosage: 300 MG, 3X/DAY
     Dates: start: 2009, end: 20130724
  2. NEURONTIN [Suspect]
     Indication: PAIN
  3. METFORMIN HCL [Suspect]
     Indication: DIABETES MELLITUS
     Dosage: 500 MG, 3X/DAY
  4. LISINOPRIL [Concomitant]
     Indication: HYPERTENSION
     Dosage: 5 MG, 1X/DAY
  5. SIMVASTATIN [Concomitant]
     Indication: BLOOD CHOLESTEROL INCREASED
     Dosage: 20 MG, 1X/DAY

REACTIONS (2)
  - Malaise [Unknown]
  - Drug ineffective [Unknown]
